FAERS Safety Report 8003319-0 (Version None)
Quarter: 2011Q4

REPORT INFORMATION
  Report Type: 
  Country: None (occurrence: None)
  Receive Date: 20111222
  Receipt Date: 20111220
  Transmission Date: 20120403
  Serious: Yes (Death, Hospitalization)
  Sender: FDA-Public Use
  Company Number: PHHY2011FR111112

PATIENT
  Sex: Female
  Weight: 45 kg

DRUGS (5)
  1. VENTOLIN [Concomitant]
  2. ONBREZ [Suspect]
     Dosage: 1 DF, DAILY
     Dates: start: 20111102
  3. PREDNISOLONE [Concomitant]
     Dosage: UNK
     Dates: start: 20111102
  4. FLIXOTAIDE [Concomitant]
     Dosage: UNK
     Dates: start: 20111102
  5. SPIRIVA [Concomitant]
     Dosage: UNK
     Dates: start: 20111102

REACTIONS (3)
  - CARDIO-RESPIRATORY ARREST [None]
  - CEREBRAL DISORDER [None]
  - COMA [None]
